FAERS Safety Report 8375554-3 (Version None)
Quarter: 2012Q1

REPORT INFORMATION
  Report Type: 
  Country: None (occurrence: None)
  Receive Date: 20120323
  Receipt Date: 20110228
  Transmission Date: 20120608
  Serious: Yes (Hospitalization)
  Sender: FDA-Public Use
  Company Number: 163-21880-11020404

PATIENT
  Age: 75 Year
  Sex: Male

DRUGS (24)
  1. REVLIMID [Suspect]
     Indication: MULTIPLE MYELOMA
     Dosage: 5 MG, 1 IN 1 D, PO, 5 MG, PO, 10 MG, DAILY FOR 14 DAYS, PO
     Route: 048
     Dates: start: 20101223, end: 20110105
  2. REVLIMID [Suspect]
     Indication: MULTIPLE MYELOMA
     Dosage: 5 MG, 1 IN 1 D, PO, 5 MG, PO, 10 MG, DAILY FOR 14 DAYS, PO
     Route: 048
     Dates: start: 20110110, end: 20110131
  3. REVLIMID [Suspect]
     Indication: MULTIPLE MYELOMA
     Dosage: 5 MG, 1 IN 1 D, PO, 5 MG, PO, 10 MG, DAILY FOR 14 DAYS, PO
     Route: 048
     Dates: start: 20110131, end: 20110209
  4. KLOR-CON [Concomitant]
  5. METOPROLOL TARTRATE [Concomitant]
  6. MIDODRINE HYDROCHLORIDE [Concomitant]
  7. OMEPRAZOLE [Concomitant]
  8. HYDRALAZINE HCL [Concomitant]
  9. CRESTOR [Concomitant]
  10. SODIUM CHLORIDE 0.9% [Concomitant]
  11. FAMOTIDINE [Concomitant]
  12. CALCIUM CITRATE + VITAMIN D (CALCIUM CITRATE W/VITAMIN D NOS) [Concomitant]
  13. VELCADE [Concomitant]
  14. AMIODARONE HCL [Concomitant]
  15. LOMOTIL [Concomitant]
  16. PROCHLORPERAZINE MALEATE [Concomitant]
  17. ANTIBIOTICS (ANTIBIOTICS) [Concomitant]
  18. MAG-OXIDE (MAGNESIUM OXIDE) [Concomitant]
  19. WARFARIN SODIUM [Concomitant]
  20. DEXAMETHASONE [Concomitant]
  21. LEVAQUIN [Concomitant]
  22. FLUIDS (BARIUM SULFATE) [Concomitant]
  23. AMLODIPINE [Concomitant]
  24. PLAVIX [Concomitant]

REACTIONS (3)
  - DIARRHOEA [None]
  - HYPOTENSION [None]
  - ATRIAL FIBRILLATION [None]
